FAERS Safety Report 10363014 (Version 4)
Quarter: 2017Q1

REPORT INFORMATION
  Report Type: Report from Study
  Country: JP (occurrence: JP)
  Receive Date: 20140805
  Receipt Date: 20170220
  Transmission Date: 20170428
  Serious: Yes (Hospitalization, Other)
  Sender: FDA-Public Use
  Company Number: JP-ASTELLAS-2010JP004032

PATIENT
  Age: 37 Year
  Sex: Female

DRUGS (116)
  1. PREDONINE [Suspect]
     Active Substance: PREDNISOLONE
     Route: 048
     Dates: start: 20140616
  2. PL GRAN. [Concomitant]
     Active Substance: UNSPECIFIED INGREDIENT
     Indication: NASOPHARYNGITIS
     Dosage: UNK, UNKNOWN FREQ.
     Route: 048
     Dates: start: 20100318, end: 20100324
  3. RESPLEN [Concomitant]
     Active Substance: EPRAZINONE
     Indication: NASOPHARYNGITIS
     Route: 048
     Dates: start: 20110324, end: 20110403
  4. OPISEZOL-CODEINE [Concomitant]
     Active Substance: HERBALS
     Route: 048
     Dates: start: 20130930, end: 20131004
  5. FERROMIA [Concomitant]
     Active Substance: FERROUS CITRATE
     Route: 048
     Dates: end: 20120513
  6. BYETTA [Concomitant]
     Active Substance: EXENATIDE
     Indication: DIABETES MELLITUS
     Route: 065
     Dates: start: 20110905
  7. MUCOSTA [Concomitant]
     Active Substance: REBAMIPIDE
     Indication: SYSTEMIC LUPUS ERYTHEMATOSUS
     Dosage: UNK UNK, AS NEEDED
     Route: 048
     Dates: end: 20110731
  8. NIFLEC [Concomitant]
     Active Substance: BICARBONATE ION\POLYETHYLENE GLYCOLS\POTASSIUM CATION\SODIUM CHLORIDE\SODIUM SULFATE ANHYDROUS
     Indication: PREMEDICATION
     Route: 048
     Dates: start: 20130808, end: 20130808
  9. NIFLEC [Concomitant]
     Active Substance: BICARBONATE ION\POLYETHYLENE GLYCOLS\POTASSIUM CATION\SODIUM CHLORIDE\SODIUM SULFATE ANHYDROUS
     Indication: PREMEDICATION
     Route: 048
     Dates: start: 20131111, end: 20131111
  10. LAXOBERON [Concomitant]
     Active Substance: SODIUM PICOSULFATE
     Indication: PREMEDICATION
     Route: 048
     Dates: start: 20130807, end: 20130807
  11. ADSORBIN [Concomitant]
     Active Substance: ALUMINUM SILICATE
     Indication: DIARRHOEA
     Route: 048
     Dates: start: 20130823, end: 20140129
  12. ADSORBIN [Concomitant]
     Active Substance: ALUMINUM SILICATE
     Indication: PRODUCT USED FOR UNKNOWN INDICATION
  13. BASEN                              /01290601/ [Concomitant]
     Active Substance: VOGLIBOSE
     Indication: GLYCOSYLATED HAEMOGLOBIN INCREASED
     Dosage: UNK UNK, UNKNOWN FREQ.
     Route: 065
     Dates: start: 20080428, end: 20090118
  14. BASEN                              /01290601/ [Concomitant]
     Active Substance: VOGLIBOSE
     Indication: GLUCOSE URINE PRESENT
  15. LASIX [Concomitant]
     Active Substance: FUROSEMIDE
     Indication: OEDEMA
     Route: 065
     Dates: start: 20090713
  16. RESTAMIN                           /00000401/ [Concomitant]
     Active Substance: DIPHENHYDRAMINE
     Indication: ECZEMA
     Dosage: UNK UNK, SEVERAL TIMES DAILY, AS NEEDED
     Route: 065
     Dates: start: 20090926
  17. PREDONINE [Suspect]
     Active Substance: PREDNISOLONE
     Route: 048
     Dates: start: 20120514, end: 20130120
  18. PL GRAN. [Concomitant]
     Active Substance: UNSPECIFIED INGREDIENT
     Route: 048
     Dates: start: 20120604, end: 20120610
  19. CLARITH [Concomitant]
     Active Substance: CLARITHROMYCIN
     Indication: NASOPHARYNGITIS
     Route: 048
     Dates: start: 20100318, end: 20100324
  20. CALONAL [Concomitant]
     Active Substance: ACETAMINOPHEN
     Indication: SYSTEMIC LUPUS ERYTHEMATOSUS
     Dosage: UNK UNK, AS NEEDED
     Route: 048
     Dates: start: 20110801, end: 20120711
  21. ISODINE [Concomitant]
     Active Substance: POVIDONE-IODINE
     Indication: NASOPHARYNGITIS
     Dosage: UNK UNK, UNKNOWN FREQ.
     Route: 061
     Dates: start: 20120604, end: 20120610
  22. METGLUCO [Concomitant]
     Active Substance: METFORMIN HYDROCHLORIDE
     Route: 048
     Dates: start: 20120416
  23. METFORMIN [Concomitant]
     Active Substance: METFORMIN HYDROCHLORIDE
     Route: 048
     Dates: start: 20110411, end: 20110605
  24. LOXONIN [Concomitant]
     Active Substance: LOXOPROFEN SODIUM
     Indication: GASTROENTERITIS
     Dosage: UNK UNK, AS NEEDED
     Route: 048
     Dates: start: 20130407, end: 20130409
  25. OPISEZOL A [Concomitant]
     Indication: NASOPHARYNGITIS
     Dosage: UNK UNK, UNKNOWN FREQ.
     Route: 048
     Dates: start: 20110817, end: 20110823
  26. SENEGA                             /00122901/ [Concomitant]
     Indication: NASOPHARYNGITIS
     Dosage: UNK UNK, UNKNOWN FREQ.
     Route: 048
     Dates: start: 20110817, end: 20110823
  27. APRICOT KERNEL WATER [Concomitant]
     Active Substance: HERBALS
     Dosage: UNK UNK, UNKNOWN FREQ.
     Route: 048
     Dates: start: 20131111, end: 20131115
  28. PREDONINE                          /00016203/ [Concomitant]
     Active Substance: PREDNISOLONE SODIUM SUCCINATE
     Indication: LUPUS NEPHRITIS
     Route: 042
     Dates: start: 20131127, end: 20131127
  29. NEXIUM [Concomitant]
     Active Substance: ESOMEPRAZOLE MAGNESIUM
     Indication: ANGINA PECTORIS
     Route: 048
     Dates: start: 20130709, end: 20130717
  30. NEXIUM [Concomitant]
     Active Substance: ESOMEPRAZOLE MAGNESIUM
     Indication: PROPHYLAXIS
  31. LAXOBERON [Concomitant]
     Active Substance: SODIUM PICOSULFATE
     Indication: PREMEDICATION
     Route: 048
     Dates: start: 20131110, end: 20131110
  32. GASCON [Concomitant]
     Active Substance: DIMETHICONE
     Indication: PREMEDICATION
     Route: 048
     Dates: start: 20131111, end: 20131111
  33. TACROLIMUS. [Suspect]
     Active Substance: TACROLIMUS
     Route: 048
     Dates: start: 20080303, end: 20121121
  34. PREDONINE [Suspect]
     Active Substance: PREDNISOLONE
     Route: 048
     Dates: start: 20090924, end: 20091025
  35. PL GRAN. [Concomitant]
     Active Substance: UNSPECIFIED INGREDIENT
     Route: 048
     Dates: start: 20121022, end: 20121028
  36. CLARITH [Concomitant]
     Active Substance: CLARITHROMYCIN
     Route: 048
     Dates: start: 20130930, end: 20131004
  37. CALONAL [Concomitant]
     Active Substance: ACETAMINOPHEN
     Indication: NASOPHARYNGITIS
     Dosage: UNK UNK, AS NEEDED
     Route: 048
     Dates: start: 20121022
  38. CALONAL [Concomitant]
     Active Substance: ACETAMINOPHEN
     Indication: HEADACHE
     Dosage: UNK UNK, AS NEEDED
     Route: 048
     Dates: start: 20130616, end: 20130625
  39. FERROMIA [Concomitant]
     Active Substance: FERROUS CITRATE
     Route: 048
     Dates: start: 20140217
  40. METGLUCO [Concomitant]
     Active Substance: METFORMIN HYDROCHLORIDE
     Indication: DIABETES MELLITUS
     Route: 048
     Dates: start: 20110214, end: 20110410
  41. METGLUCO [Concomitant]
     Active Substance: METFORMIN HYDROCHLORIDE
     Route: 048
  42. GLIMICRON [Concomitant]
     Active Substance: GLICLAZIDE
     Indication: DIABETES MELLITUS
     Route: 048
  43. MUCOSTA [Concomitant]
     Active Substance: REBAMIPIDE
     Indication: ARTHRALGIA
     Dosage: UNK UNK, AS NEEDED
     Route: 048
     Dates: start: 20131127, end: 20131216
  44. SOLU-CORTEF [Concomitant]
     Active Substance: HYDROCORTISONE SODIUM SUCCINATE
     Indication: LUPUS NEPHRITIS
     Route: 042
     Dates: start: 20131127, end: 20131127
  45. BIO-THREE [Concomitant]
     Active Substance: HERBALS
     Indication: GASTROENTERITIS
     Route: 048
     Dates: start: 20130407, end: 20130409
  46. VOLTAREN [Concomitant]
     Active Substance: DICLOFENAC SODIUM
     Indication: ARTHRALGIA
     Dosage: UNK UNK, AS NEEDED
     Route: 054
     Dates: start: 20090926
  47. VEEN D [Concomitant]
     Active Substance: CALCIUM CHLORIDE\DEXTROSE\POTASSIUM CHLORIDE\SODIUM ACETATE\SODIUM CHLORIDE
     Indication: LARGE INTESTINE POLYP
     Route: 065
     Dates: start: 20131111, end: 20131112
  48. PREDONINE [Suspect]
     Active Substance: PREDNISOLONE
     Route: 048
     Dates: start: 20080303, end: 20080622
  49. PREDONINE [Suspect]
     Active Substance: PREDNISOLONE
     Route: 048
     Dates: start: 20140519, end: 20140615
  50. OPISEZOL-CODEINE [Concomitant]
     Active Substance: HERBALS
     Indication: NASOPHARYNGITIS
     Route: 048
     Dates: start: 20110328, end: 20110403
  51. OPISEZOL-CODEINE [Concomitant]
     Active Substance: HERBALS
     Indication: GASTROENTERITIS
     Route: 048
     Dates: start: 20120604, end: 20120610
  52. MUCODYNE [Concomitant]
     Active Substance: CARBOCYSTEINE
     Route: 048
     Dates: start: 20130930, end: 20131004
  53. GASCON [Concomitant]
     Active Substance: DIMETHICONE
     Indication: PREMEDICATION
     Route: 048
     Dates: start: 20130808, end: 20130808
  54. KEISHIBUKURYOGAN [Concomitant]
     Active Substance: HERBALS
     Indication: PREMENSTRUAL SYNDROME
     Route: 048
     Dates: start: 20131021, end: 20131113
  55. MYONAL                             /00287502/ [Concomitant]
     Active Substance: EPERISONE HYDROCHLORIDE
     Indication: TEMPOROMANDIBULAR JOINT SYNDROME
     Route: 048
     Dates: start: 20131202, end: 20140717
  56. TACROLIMUS. [Suspect]
     Active Substance: TACROLIMUS
     Dosage: UNK UNK, UNKNOWN FREQ.
     Route: 048
     Dates: start: 20151019
  57. GASTER [Concomitant]
     Active Substance: FAMOTIDINE
     Indication: PROPHYLAXIS
     Route: 048
     Dates: end: 20131129
  58. PL GRAN. [Concomitant]
     Active Substance: UNSPECIFIED INGREDIENT
     Route: 048
     Dates: start: 20110324, end: 20110403
  59. CALONAL [Concomitant]
     Active Substance: ACETAMINOPHEN
     Dosage: UNK UNK, AS NEEDED
     Route: 048
     Dates: start: 20130930
  60. FERROMIA [Concomitant]
     Active Substance: FERROUS CITRATE
     Route: 048
     Dates: start: 20121210, end: 20130722
  61. BONALON [Concomitant]
     Active Substance: ALENDRONATE SODIUM
     Indication: PROPHYLAXIS
     Route: 048
     Dates: end: 20110313
  62. BYETTA [Concomitant]
     Active Substance: EXENATIDE
     Route: 065
  63. APRICOT KERNEL WATER [Concomitant]
     Active Substance: HERBALS
     Indication: NASOPHARYNGITIS
     Dosage: UNK, UNKNOWN FREQ.
     Route: 048
     Dates: start: 20110817, end: 20110823
  64. BIO-THREE [Concomitant]
     Active Substance: HERBALS
     Indication: PRODUCT USED FOR UNKNOWN INDICATION
  65. TOKISHAKUYAKUSAN                   /08000701/ [Concomitant]
     Active Substance: HERBALS
     Indication: PREMENSTRUAL SYNDROME
     Route: 048
     Dates: start: 20131114, end: 20131207
  66. TACROLIMUS. [Suspect]
     Active Substance: TACROLIMUS
     Route: 048
     Dates: start: 20121122, end: 20140907
  67. PREDONINE [Suspect]
     Active Substance: PREDNISOLONE
     Indication: LUPUS NEPHRITIS
     Route: 048
     Dates: start: 20071210, end: 20080302
  68. PREDONINE [Suspect]
     Active Substance: PREDNISOLONE
     Route: 048
     Dates: start: 20140317, end: 20140518
  69. DIOVAN [Concomitant]
     Active Substance: VALSARTAN
     Indication: HYPERTENSION
     Route: 048
     Dates: end: 20101212
  70. PL GRAN. [Concomitant]
     Active Substance: UNSPECIFIED INGREDIENT
     Route: 048
     Dates: start: 20131111, end: 20131115
  71. CLARITH [Concomitant]
     Active Substance: CLARITHROMYCIN
     Indication: GASTROENTERITIS
     Route: 048
     Dates: start: 20120604, end: 20120610
  72. OPISEZOL-CODEINE [Concomitant]
     Active Substance: HERBALS
     Route: 048
     Dates: start: 20130415, end: 20130421
  73. ISODINE [Concomitant]
     Active Substance: POVIDONE-IODINE
     Dosage: UNK UNK, UNKNOWN FREQ.
     Route: 061
     Dates: start: 20130930
  74. GLIMICRON [Concomitant]
     Active Substance: GLICLAZIDE
     Indication: DIABETES MELLITUS
     Route: 048
     Dates: start: 20120910
  75. LOXONIN [Concomitant]
     Active Substance: LOXOPROFEN SODIUM
     Indication: SYSTEMIC LUPUS ERYTHEMATOSUS
     Dosage: UNK UNK, AS NEEDED
     Route: 048
     Dates: end: 20110731
  76. SENEGA                             /00122901/ [Concomitant]
     Dosage: UNK UNK, UNKNOWN FREQ.
     Route: 048
     Dates: start: 20131111, end: 20131115
  77. GLUCAGON. [Concomitant]
     Active Substance: GLUCAGON
     Indication: PREMEDICATION
     Route: 065
     Dates: start: 20130617, end: 20130617
  78. TACROLIMUS. [Suspect]
     Active Substance: TACROLIMUS
     Indication: LUPUS NEPHRITIS
     Route: 048
     Dates: start: 20071210, end: 20080302
  79. PREDONINE [Suspect]
     Active Substance: PREDNISOLONE
     Route: 048
     Dates: start: 20080623, end: 20090715
  80. PREDONINE [Suspect]
     Active Substance: PREDNISOLONE
     Route: 048
     Dates: start: 20090716, end: 20090802
  81. PREDONINE [Suspect]
     Active Substance: PREDNISOLONE
     Route: 048
     Dates: start: 20090803, end: 20090923
  82. PREDONINE [Suspect]
     Active Substance: PREDNISOLONE
     Route: 048
     Dates: start: 20091026, end: 20091115
  83. PREDONINE [Suspect]
     Active Substance: PREDNISOLONE
     Route: 048
     Dates: start: 20130121, end: 20130721
  84. PREDONINE [Suspect]
     Active Substance: PREDNISOLONE
     Route: 048
     Dates: start: 20131130, end: 20140316
  85. ASTOMIN [Concomitant]
     Active Substance: DIMEMORFAN
     Route: 048
     Dates: start: 20121022, end: 20121028
  86. FERROMIA [Concomitant]
     Active Substance: FERROUS CITRATE
     Indication: IRON DEFICIENCY ANAEMIA
     Route: 048
     Dates: start: 20090803, end: 20100316
  87. METGLUCO [Concomitant]
     Active Substance: METFORMIN HYDROCHLORIDE
     Route: 048
     Dates: end: 20120415
  88. GLIMICRON [Concomitant]
     Active Substance: GLICLAZIDE
     Indication: PROPHYLAXIS
  89. METFORMIN [Concomitant]
     Active Substance: METFORMIN HYDROCHLORIDE
     Indication: DIABETES MELLITUS
     Route: 048
     Dates: end: 20110213
  90. LOXONIN [Concomitant]
     Active Substance: LOXOPROFEN SODIUM
     Indication: ARTHRALGIA
     Dosage: UNK UNK, AS NEEDED
     Route: 048
     Dates: start: 20131101, end: 20131216
  91. LOXONIN [Concomitant]
     Active Substance: LOXOPROFEN SODIUM
     Indication: LUPUS NEPHRITIS
     Dosage: UNK, WHEN PAINFUL, AS NEEDED
     Route: 048
     Dates: start: 20140616
  92. OPISEZOL A [Concomitant]
     Dosage: UNK UNK, UNKNOWN FREQ.
     Route: 048
     Dates: start: 20131111, end: 20131115
  93. PREDONINE                          /00016203/ [Concomitant]
     Active Substance: PREDNISOLONE SODIUM SUCCINATE
     Route: 042
     Dates: start: 20131128, end: 20131129
  94. NEXIUM [Concomitant]
     Active Substance: ESOMEPRAZOLE MAGNESIUM
     Indication: ARTHRALGIA
     Route: 048
     Dates: start: 20131129
  95. VOLTAREN [Concomitant]
     Active Substance: DICLOFENAC SODIUM
     Indication: ARTHRALGIA
     Route: 054
     Dates: start: 20131127, end: 20131216
  96. BASEN                              /01290601/ [Concomitant]
     Active Substance: VOGLIBOSE
     Indication: DIABETES MELLITUS
     Dosage: 0.9 MG, ONCE DAILY
     Route: 048
     Dates: start: 20140616
  97. MAGMITT [Concomitant]
     Active Substance: MAGNESIUM OXIDE
     Indication: CONSTIPATION
     Route: 065
     Dates: start: 20090216, end: 20091025
  98. PREDONINE [Suspect]
     Active Substance: PREDNISOLONE
     Route: 048
     Dates: start: 20091116, end: 20120513
  99. PREDONINE [Suspect]
     Active Substance: PREDNISOLONE
     Route: 048
     Dates: start: 20130722, end: 20131106
  100. PREDONINE [Suspect]
     Active Substance: PREDNISOLONE
     Route: 048
     Dates: start: 20131107, end: 20131127
  101. ASTOMIN [Concomitant]
     Active Substance: DIMEMORFAN
     Indication: NASOPHARYNGITIS
     Route: 048
     Dates: start: 20120604, end: 20120610
  102. DIOVAN [Concomitant]
     Active Substance: VALSARTAN
     Route: 048
     Dates: start: 20101213
  103. CLARITH [Concomitant]
     Active Substance: CLARITHROMYCIN
     Route: 048
     Dates: start: 20130415, end: 20130421
  104. FERROMIA [Concomitant]
     Active Substance: FERROUS CITRATE
     Indication: PROPHYLAXIS
     Route: 048
     Dates: start: 20110905
  105. MUCODYNE [Concomitant]
     Active Substance: CARBOCYSTEINE
     Indication: NASOPHARYNGITIS
     Route: 048
     Dates: start: 20121022, end: 20121028
  106. MUCODYNE [Concomitant]
     Active Substance: CARBOCYSTEINE
     Indication: GASTROENTERITIS
     Route: 048
     Dates: start: 20130415, end: 20130421
  107. METGLUCO [Concomitant]
     Active Substance: METFORMIN HYDROCHLORIDE
     Indication: DIABETES MELLITUS
     Route: 048
     Dates: start: 20110606
  108. METGLUCO [Concomitant]
     Active Substance: METFORMIN HYDROCHLORIDE
     Route: 048
  109. BYETTA [Concomitant]
     Active Substance: EXENATIDE
     Indication: DIABETES MELLITUS
     Route: 065
     Dates: start: 20110722, end: 20110904
  110. BIO-THREE [Concomitant]
     Active Substance: HERBALS
     Indication: DIARRHOEA
     Route: 048
     Dates: start: 20130623, end: 20140129
  111. LAMISIL [Concomitant]
     Active Substance: TERBINAFINE HYDROCHLORIDE
     Indication: VULVOVAGINAL CANDIDIASIS
     Dosage: UNK UNK, ONCE DAILY
     Route: 061
     Dates: start: 20130708
  112. BAYASPIRIN [Concomitant]
     Active Substance: ASPIRIN
     Indication: ANGINA PECTORIS
     Route: 048
     Dates: start: 20130709, end: 20130717
  113. PLAVIX [Concomitant]
     Active Substance: CLOPIDOGREL BISULFATE
     Indication: ANGINA PECTORIS
     Route: 048
     Dates: start: 20130709, end: 20130717
  114. KEISHIBUKURYOGAN [Concomitant]
     Active Substance: HERBALS
     Route: 048
     Dates: start: 20131216
  115. NORVASC [Concomitant]
     Active Substance: AMLODIPINE BESYLATE
     Indication: HYPERTENSION
     Route: 048
     Dates: start: 20140120, end: 20140420
  116. SULFAMETHOXAZOLE W/TRIMETHOPRIM [Concomitant]
     Active Substance: SULFAMETHOXAZOLE\TRIMETHOPRIM
     Indication: PROPHYLAXIS
     Route: 048
     Dates: start: 20131130

REACTIONS (22)
  - Nasopharyngitis [Recovered/Resolved]
  - Headache [Recovered/Resolved]
  - Gastroenteritis [Recovered/Resolved]
  - Vulvovaginal candidiasis [Recovered/Resolved]
  - Premenstrual syndrome [Recovered/Resolved]
  - Temporomandibular joint syndrome [Recovering/Resolving]
  - Large intestine polyp [Recovered/Resolved]
  - Glucose urine present [Recovered/Resolved]
  - Arthralgia [Recovered/Resolved]
  - Angina pectoris [Recovered/Resolved]
  - Constipation [Recovered/Resolved]
  - Hypertension [Recovering/Resolving]
  - Gastroenteritis [Recovered/Resolved]
  - Eczema [Recovered/Resolved]
  - Vulvovaginal candidiasis [Recovered/Resolved]
  - Oedema [Recovered/Resolved]
  - Iron deficiency anaemia [Recovering/Resolving]
  - Upper respiratory tract infection [Recovered/Resolved]
  - Diarrhoea [Recovered/Resolved]
  - Diabetes mellitus [Recovering/Resolving]
  - Glycosylated haemoglobin increased [Recovered/Resolved]
  - Arthralgia [Recovering/Resolving]

NARRATIVE: CASE EVENT DATE: 20080428
